FAERS Safety Report 8321125-4 (Version None)
Quarter: 2012Q2

REPORT INFORMATION
  Report Type: 
  Country: None (occurrence: None)
  Receive Date: 20120430
  Receipt Date: 20120425
  Transmission Date: 20120825
  Serious: Yes (Other)
  Sender: FDA-Public Use
  Company Number: BE-UCBSA-034866

PATIENT
  Age: 37 Year
  Sex: Female
  Weight: 130 kg

DRUGS (3)
  1. VIMPAT [Suspect]
     Indication: PARTIAL SEIZURES
  2. KEPPRA [Suspect]
     Indication: PARTIAL SEIZURES
  3. TOPIRAMATE [Concomitant]

REACTIONS (2)
  - PREGNANCY [None]
  - ABORTION SPONTANEOUS [None]
